FAERS Safety Report 4643643-2 (Version None)
Quarter: 2005Q2

REPORT INFORMATION
  Report Type: 
  Country: None (occurrence: None)
  Receive Date: 20050425
  Receipt Date: 20050421
  Transmission Date: 20051028
  Serious: Yes (Other)
  Sender: FDA-Public Use
  Company Number: PHBS2005CH05811

PATIENT
  Age: 46 Year
  Sex: Male

DRUGS (8)
  1. CIPROFLOXACIN [Suspect]
     Dosage: 1500 MG/D
     Route: 048
     Dates: start: 20000901
  2. CIPROFLOXACIN [Suspect]
     Dosage: 3000 MG/D
     Route: 048
  3. OMEPRAZOLE [Concomitant]
  4. VALPROIC ACID [Concomitant]
  5. CLOZAPINE [Suspect]
     Indication: SCHIZOPHRENIA
     Dosage: 400 MG/D
     Route: 048
  6. CLOZAPINE [Suspect]
     Dosage: 500 MG/D
     Route: 048
  7. CLOZAPINE [Suspect]
     Dosage: 775 MG/D
     Route: 048
  8. CLOZAPINE [Suspect]
     Dosage: 600 MG/D
     Route: 048

REACTIONS (3)
  - DRUG INTERACTION [None]
  - DRUG LEVEL INCREASED [None]
  - URINARY TRACT INFECTION [None]
